FAERS Safety Report 4557875-5 (Version None)
Quarter: 2005Q1

REPORT INFORMATION
  Report Type: 
  Country: None (occurrence: None)
  Receive Date: 20050121
  Receipt Date: 20030206
  Transmission Date: 20050727
  Serious: Yes (Other)
  Sender: FDA-Public Use
  Company Number: US-BRISTOL-MYERS SQUIBB COMPANY-12179404

PATIENT
  Age: 76 Year
  Sex: Male
  Weight: 116 kg

DRUGS (1)
  1. SERZONE [Suspect]
     Indication: DEPRESSION
     Route: 048
     Dates: start: 20010908, end: 20020831

REACTIONS (14)
  - ABDOMINAL PAIN UPPER [None]
  - ASTHENIA [None]
  - BACK PAIN [None]
  - BLEPHARITIS [None]
  - CHROMATURIA [None]
  - DYSPEPSIA [None]
  - FATIGUE [None]
  - HEPATOCELLULAR DAMAGE [None]
  - INJURY [None]
  - MALAISE [None]
  - NAUSEA [None]
  - RASH [None]
  - VISION BLURRED [None]
  - WEIGHT DECREASED [None]
